FAERS Safety Report 8006184-0 (Version None)
Quarter: 2011Q4

REPORT INFORMATION
  Report Type: 
  Country: None (occurrence: None)
  Receive Date: 20111226
  Receipt Date: 20111213
  Transmission Date: 20120403
  Serious: Yes (Hospitalization)
  Sender: FDA-Public Use
  Company Number: PHHY2011AU105007

PATIENT
  Sex: Male

DRUGS (1)
  1. CLOZARIL [Suspect]
     Dosage: 400 MG
     Dates: start: 20091001

REACTIONS (3)
  - MALAISE [None]
  - LUNG NEOPLASM [None]
  - SMALL CELL LUNG CANCER STAGE UNSPECIFIED [None]
